FAERS Safety Report 8547413 (Version 4)
Quarter: 2012Q4

REPORT INFORMATION
  Report Type: 
  Country: JP (occurrence: JP)
  Receive Date: 20120504
  Receipt Date: 20121019
  Transmission Date: 20130627
  Serious: Yes (Hospitalization, Other)
  Sender: FDA-Public Use
  Company Number: JP-JNJFOC-20120501374

PATIENT
  Age: 0 Year
  Sex: Male
  Weight: 2.46 kg

DRUGS (7)
  1. DUROTEP MT [Suspect]
     Indication: FOETAL EXPOSURE DURING PREGNANCY
     Route: 064
     Dates: start: 2005, end: 20111027
  2. FENTANYL CITRATE [Suspect]
     Indication: FOETAL EXPOSURE DURING PREGNANCY
     Route: 064
     Dates: start: 20111025, end: 20111025
  3. PHENOBARBITAL [Suspect]
     Indication: PRODUCT USED FOR UNKNOWN INDICATION
     Route: 042
     Dates: start: 20111027, end: 20111027
  4. PHENOBARBITAL [Suspect]
     Indication: PRODUCT USED FOR UNKNOWN INDICATION
     Route: 042
     Dates: start: 20111027, end: 20111031
  5. MORPHINE HYDROCHLORIDE [Suspect]
     Indication: FOETAL EXPOSURE DURING PREGNANCY
     Route: 064
  6. METOCLOPRAMIDE [Suspect]
     Indication: FOETAL EXPOSURE DURING PREGNANCY
     Route: 064
  7. ULTIVA [Suspect]
     Indication: FOETAL EXPOSURE DURING PREGNANCY
     Route: 064
     Dates: start: 20111025, end: 20111025

REACTIONS (10)
  - Premature baby [Not Recovered/Not Resolved]
  - Analgesic drug level increased [Recovering/Resolving]
  - Transient tachypnoea of the newborn [Unknown]
  - Feeding disorder [Recovering/Resolving]
  - Vomiting [Recovering/Resolving]
  - Irritability [Recovering/Resolving]
  - Drug withdrawal syndrome neonatal [Recovering/Resolving]
  - Hyperreflexia [Recovering/Resolving]
  - Gamma-glutamyltransferase increased [Not Recovered/Not Resolved]
  - Blood alkaline phosphatase increased [Not Recovered/Not Resolved]
